FAERS Safety Report 7985806-4 (Version None)
Quarter: 2011Q4

REPORT INFORMATION
  Report Type: 
  Country: None (occurrence: None)
  Receive Date: 20111216
  Receipt Date: 20111215
  Transmission Date: 20120403
  Serious: Yes (Hospitalization)
  Sender: FDA-Public Use
  Company Number: JP-ABBOTT-11P-087-0875597-00

PATIENT
  Sex: Female
  Weight: 47.5 kg

DRUGS (15)
  1. PROPOFOL [Concomitant]
     Indication: GENERAL ANAESTHESIA
     Route: 042
     Dates: start: 20110127, end: 20110127
  2. FLURBIPROFEN [Concomitant]
     Indication: PRODUCT USED FOR UNKNOWN INDICATION
     Route: 042
     Dates: start: 20110127, end: 20110127
  3. REMIFENTANIL HYDROCHLORIDE [Suspect]
     Indication: GENERAL ANAESTHESIA
     Route: 042
     Dates: start: 20110127, end: 20110127
  4. FENTANYL [Suspect]
     Dates: start: 20110127, end: 20110127
  5. SEVOFLURANE [Suspect]
     Dates: start: 20110127, end: 20110127
  6. SEVOFLURANE [Suspect]
     Indication: GENERAL ANAESTHESIA
     Dosage: 0.5-4.0%
     Route: 055
     Dates: start: 20110127, end: 20110127
  7. SEVOFLURANE [Suspect]
     Dates: start: 20110127, end: 20110127
  8. SEVOFLURANE [Suspect]
     Dates: start: 20110127, end: 20110127
  9. REMIFENTANIL HYDROCHLORIDE [Suspect]
     Dates: start: 20110127, end: 20110127
  10. FENTANYL [Suspect]
     Indication: GENERAL ANAESTHESIA
     Route: 042
     Dates: start: 20110127, end: 20110127
  11. SEVOFLURANE [Suspect]
     Dates: start: 20110127, end: 20110127
  12. REMIFENTANIL HYDROCHLORIDE [Suspect]
     Dates: start: 20110127, end: 20110127
  13. PROPOFOL [Concomitant]
     Dates: start: 20110127, end: 20110127
  14. ROCURONIUM BROMIDE [Concomitant]
     Indication: GENERAL ANAESTHESIA
     Route: 042
     Dates: start: 20110127, end: 20110127
  15. LIDOCAINE [Concomitant]
     Indication: PRODUCT USED FOR UNKNOWN INDICATION
     Route: 042
     Dates: start: 20110127, end: 20110127

REACTIONS (2)
  - DELAYED RECOVERY FROM ANAESTHESIA [None]
  - STRESS CARDIOMYOPATHY [None]
